FAERS Safety Report 5125727-8 (Version None)
Quarter: 2006Q3

REPORT INFORMATION
  Report Type: 
  Country: None (occurrence: None)
  Receive Date: 20060814
  Receipt Date: 20051007
  Transmission Date: 20061208
  Serious: Yes (Other)
  Sender: FDA-Public Use
  Company Number: PHEH2005US11210

PATIENT
  Sex: Female

DRUGS (1)
  1. VISUDYNE [Suspect]

REACTIONS (1)
  - VISUAL ACUITY REDUCED [None]
